FAERS Safety Report 10252229 (Version 1)
Quarter: 2014Q2

REPORT INFORMATION
  Report Type: Report from Study
  Country: US (occurrence: US)
  Receive Date: 20140623
  Receipt Date: 20140623
  Transmission Date: 20141212
  Serious: Yes (Death)
  Sender: FDA-Public Use
  Company Number: US-ROCHE-1368979

PATIENT
  Age: 47 Year
  Sex: Female
  Weight: 82 kg

DRUGS (1)
  1. XOLAIR [Suspect]
     Indication: ASTHMA
     Dosage: 375 MG/DOSE
     Route: 065

REACTIONS (1)
  - Asthma [Fatal]
